FAERS Safety Report 20728763 (Version 1)
Quarter: 2022Q2

REPORT INFORMATION
  Report Type: Report from Study
  Country: NL (occurrence: None)
  Receive Date: 20220420
  Receipt Date: 20220420
  Transmission Date: 20220720
  Serious: Yes (Death)
  Sender: FDA-Public Use
  Company Number: NL-ADIENNEP-2022AD000326

PATIENT
  Age: 3 Year
  Sex: Female

DRUGS (3)
  1. THIOTEPA [Suspect]
     Active Substance: THIOTEPA
     Indication: Allogenic stem cell transplantation
     Dosage: TOTAL DOSE 8 TO 10 MG/KG, DAY -6 ()
  2. FLUDARABINE [Suspect]
     Active Substance: FLUDARABINE PHOSPHATE
     Indication: Allogenic stem cell transplantation
     Dosage: TOTAL DOSE OF 150 TO 160 MG/M2, DAY -6 TO DAY -2 ()
  3. TREOSULFAN [Suspect]
     Active Substance: TREOSULFAN
     Indication: Allogenic stem cell transplantation
     Dosage: 14 G/M2 PER DAY (DAY -5 TO DAY -3) (14G/M2)

REACTIONS (1)
  - Transplantation complication [Fatal]
